FAERS Safety Report 7379951-4 (Version None)
Quarter: 2011Q1

REPORT INFORMATION
  Report Type: 
  Country: None (occurrence: None)
  Receive Date: 20110324
  Receipt Date: 20110324
  Transmission Date: 20110831
  Serious: No
  Sender: FDA-Public Use
  Company Number: None

PATIENT
  Sex: Female
  Weight: 56.8 kg

DRUGS (1)
  1. ENBREL [Suspect]
     Indication: RHEUMATOID ARTHRITIS
     Dosage: 50MG EVERY WEEK SUBCUTANEOUSLY
     Route: 058
     Dates: start: 20110316

REACTIONS (2)
  - WEIGHT INCREASED [None]
  - ANAPHYLACTIC SHOCK [None]
